FAERS Safety Report 13552081 (Version 2)
Quarter: 2017Q3

REPORT INFORMATION
  Report Type: Spontaneous
  Country: US (occurrence: US)
  Receive Date: 20170516
  Receipt Date: 20170717
  Transmission Date: 20171127
  Serious: Yes (Other)
  Sender: FDA-Public Use
  Company Number: US-TEVA-726990USA

PATIENT
  Sex: Male

DRUGS (2)
  1. POTASSIUM CHLORIDE. [Suspect]
     Active Substance: POTASSIUM CHLORIDE
     Route: 048
     Dates: start: 20151225, end: 20161223
  2. POTASSIUM CHLORIDE. [Suspect]
     Active Substance: POTASSIUM CHLORIDE
     Indication: HYPOKALAEMIA
     Route: 048
     Dates: start: 2012

REACTIONS (7)
  - Wrong technique in product usage process [Unknown]
  - Choking [Unknown]
  - Dysphagia [Recovered/Resolved]
  - Product physical issue [Unknown]
  - Throat irritation [Unknown]
  - Foreign body in respiratory tract [Unknown]
  - Product use complaint [Recovered/Resolved]
